FAERS Safety Report 5156302-7 (Version None)
Quarter: 2006Q4

REPORT INFORMATION
  Report Type: 
  Country: None (occurrence: None)
  Receive Date: 20061122
  Receipt Date: 20061121
  Transmission Date: 20070319
  Serious: Yes (Life-Threatening, Hospitalization, Other)
  Sender: FDA-Public Use
  Company Number: US-GLAXOSMITHKLINE-A0628292A

PATIENT
  Age: 5 Year
  Sex: Male

DRUGS (2)
  1. ZOFRAN [Suspect]
     Indication: VOMITING
     Route: 065
     Dates: start: 20061101
  2. NO CONCURRENT MEDICATION [Concomitant]

REACTIONS (3)
  - BLINDNESS TRANSIENT [None]
  - BLOOD PRESSURE INCREASED [None]
  - CONVULSION [None]
